FAERS Safety Report 20012427 (Version 1)
Quarter: 2021Q4

REPORT INFORMATION
  Report Type: Report from Study
  Country: IT (occurrence: IT)
  Receive Date: 20211029
  Receipt Date: 20211029
  Transmission Date: 20220303
  Serious: Yes (Hospitalization)
  Sender: FDA-Public Use
  Company Number: None

PATIENT
  Age: 41 Year
  Sex: Female

DRUGS (2)
  1. TRIAZOLAM [Suspect]
     Active Substance: TRIAZOLAM
     Indication: Personality disorder
     Dosage: 1.5 MILLIGRAM, ONCE
     Route: 048
  2. QUETIAPINE [Suspect]
     Active Substance: QUETIAPINE
     Indication: Personality disorder
     Dosage: 2250 MILLIGRAM, ONCE
     Route: 048

REACTIONS (2)
  - Hypotension [Unknown]
  - Drug abuse [Unknown]

NARRATIVE: CASE EVENT DATE: 20210625
